FAERS Safety Report 9293102 (Version 1)
Quarter: 2013Q2

REPORT INFORMATION
  Report Type: Spontaneous
  Country: US (occurrence: None)
  Receive Date: 20130514
  Receipt Date: 20130514
  Transmission Date: 20140414
  Serious: Yes (Death)
  Sender: FDA-Public Use
  Company Number: 2013-161

PATIENT
  Age: 66 Year
  Sex: Male

DRUGS (8)
  1. PRIALT (ZICONOTIDE) INTRATHECAL INFUSION [Suspect]
     Indication: PAIN
     Dosage: ONCE/HOUR
     Route: 037
  2. PRIALT (ZICONOTIDE) INTRATHECAL INFUSION [Suspect]
     Indication: PLASMA CELL MYELOMA
     Dosage: ONCE/HOUR
     Route: 037
  3. BACLOFEN (BACLOFEN) (BACLOFEN) [Suspect]
     Indication: PAIN
     Dosage: ONCE/HOUR
     Route: 037
  4. BACLOFEN (BACLOFEN) (BACLOFEN) [Suspect]
     Indication: PLASMA CELL MYELOMA
     Dosage: ONCE/HOUR
     Route: 037
  5. DILAUDID (HYDROMORPHONE HYDROCHLORIDE) INJECTION [Suspect]
     Indication: PAIN
     Dosage: ONCE/HOUR
     Route: 037
  6. DILAUDID (HYDROMORPHONE HYDROCHLORIDE) INJECTION [Suspect]
     Indication: PLASMA CELL MYELOMA
     Dosage: ONCE/HOUR
     Route: 037
  7. MORPHINE SULFATE [Suspect]
     Indication: PAIN
     Dosage: ONCE/HOUR
     Route: 037
  8. MORPHINE SULFATE [Suspect]
     Indication: PLASMA CELL MYELOMA
     Dosage: ONCE/HOUR
     Route: 037

REACTIONS (2)
  - Neoplasm malignant [None]
  - Pneumonia [None]
